FAERS Safety Report 7434049-1 (Version None)
Quarter: 2011Q2

REPORT INFORMATION
  Report Type: 
  Country: None (occurrence: None)
  Receive Date: 20110421
  Receipt Date: 20110421
  Transmission Date: 20111010
  Serious: No
  Sender: FDA-Public Use
  Company Number: None

PATIENT
  Sex: Male
  Weight: 72.5755 kg

DRUGS (2)
  1. AZITHROMYCIN [Suspect]
     Indication: INFECTION
     Dosage: ONE TABLET DAILY PO
     Route: 048
     Dates: start: 20110328, end: 20110331
  2. AZITHROMYCIN [Suspect]
     Indication: COUGH
     Dosage: ONE TABLET DAILY PO
     Route: 048
     Dates: start: 20110328, end: 20110331

REACTIONS (3)
  - DRUG INEFFECTIVE [None]
  - PRODUCT MEASURED POTENCY ISSUE [None]
  - PRODUCT QUALITY ISSUE [None]
